FAERS Safety Report 6778925-1 (Version None)
Quarter: 2010Q2

REPORT INFORMATION
  Report Type: 
  Country: None (occurrence: None)
  Receive Date: 20100618
  Receipt Date: 20100610
  Transmission Date: 20101027
  Serious: Yes (Hospitalization)
  Sender: FDA-Public Use
  Company Number: JP-JNJFOC-20100507190

PATIENT
  Sex: Male
  Weight: 69 kg

DRUGS (7)
  1. RISPERDAL CONSTA [Suspect]
     Indication: SCHIZOPHRENIA
     Route: 030
  2. RISPERDAL CONSTA [Suspect]
     Dosage: FOR 14 DAYS
     Route: 030
  3. RISPERDAL CONSTA [Suspect]
     Route: 030
  4. ENZYME PREPARATIONS [Concomitant]
     Indication: UPPER RESPIRATORY TRACT INFLAMMATION
     Route: 048
  5. ENZYME PREPARATIONS [Concomitant]
     Indication: BRONCHITIS
     Route: 048
  6. TRANSAMIN [Concomitant]
     Indication: UPPER RESPIRATORY TRACT INFLAMMATION
     Route: 048
  7. CYANOCOBALAMIN [Concomitant]
     Indication: INSOMNIA
     Route: 048

REACTIONS (3)
  - BEDRIDDEN [None]
  - INAPPROPRIATE SCHEDULE OF DRUG ADMINISTRATION [None]
  - RHABDOMYOLYSIS [None]
